FAERS Safety Report 18215378 (Version 1)
Quarter: 2020Q3

REPORT INFORMATION
  Report Type: Spontaneous
  Country: CN (occurrence: CN)
  Receive Date: 20200831
  Receipt Date: 20200831
  Transmission Date: 20201103
  Serious: Yes (Hospitalization)
  Sender: FDA-Public Use
  Company Number: CN-COEPTIS PHARMACEUTICALS, INC.-COE-2020-000033

PATIENT
  Age: 55 Year
  Sex: Female

DRUGS (3)
  1. CELECOXIB. [Suspect]
     Active Substance: CELECOXIB
     Indication: ARTHRALGIA
  2. FLUOXETINE HYDROCHLORIDE. [Suspect]
     Active Substance: FLUOXETINE HYDROCHLORIDE
     Indication: DEPRESSION
  3. CELECOXIB. [Suspect]
     Active Substance: CELECOXIB
     Indication: OSTEOARTHRITIS
     Dosage: TOOK CELECOXIB WHEN PAIN ATTACK, LATELY SINCE 7 DAYS FOR ACHE OF DOUBLE KNEE

REACTIONS (4)
  - Cholelithiasis [Unknown]
  - Drug interaction [Recovered/Resolved]
  - Cholecystitis [Unknown]
  - Liver injury [Recovered/Resolved]
